FAERS Safety Report 18459678 (Version 3)
Quarter: 2020Q4

REPORT INFORMATION
  Report Type: Spontaneous
  Country: CZ (occurrence: CZ)
  Receive Date: 20201103
  Receipt Date: 20201203
  Transmission Date: 20210114
  Serious: Yes (Hospitalization, Other)
  Sender: FDA-Public Use
  Company Number: CZ-INSUD PHARMA-2010CZ00244

PATIENT

DRUGS (3)
  1. NONE [Concomitant]
     Active Substance: UNSPECIFIED INGREDIENT
  2. SLYND [Suspect]
     Active Substance: DROSPIRENONE
     Indication: MENOMETRORRHAGIA
     Dosage: 1 TABLET, ONCE DAILY
     Route: 048
     Dates: start: 20200731, end: 20200805
  3. SLYND [Suspect]
     Active Substance: DROSPIRENONE
     Indication: CONTRACEPTION

REACTIONS (4)
  - Thrombophlebitis superficial [Recovering/Resolving]
  - Pain in extremity [Unknown]
  - Off label use [Unknown]
  - Peripheral swelling [Unknown]

NARRATIVE: CASE EVENT DATE: 20200803
